FAERS Safety Report 4744904-9 (Version None)
Quarter: 2005Q3

REPORT INFORMATION
  Report Type: 
  Country: None (occurrence: None)
  Receive Date: 20050815
  Receipt Date: 20050708
  Transmission Date: 20060218
  Serious: Yes (Hospitalization, Disabling)
  Sender: FDA-Public Use
  Company Number: US-MERCK-0507USA01240

PATIENT
  Age: 44 Year
  Sex: Female
  Weight: 98 kg

DRUGS (9)
  1. VIOXX [Suspect]
     Indication: PAIN
     Route: 048
     Dates: start: 20000101
  2. LEXAPRO [Concomitant]
     Route: 065
  3. FLEXERIL [Concomitant]
     Route: 065
  4. PROVENTIL [Concomitant]
     Route: 065
  5. FLOVENT [Concomitant]
     Route: 065
  6. COUMADIN [Concomitant]
     Route: 065
  7. TYLENOL W/ CODEINE NO. 3 [Concomitant]
     Route: 065
  8. TOPROL-XL [Concomitant]
     Route: 065
  9. SEREVENT [Concomitant]
     Route: 065

REACTIONS (10)
  - ATRIAL FIBRILLATION [None]
  - CHRONIC OBSTRUCTIVE PULMONARY DISEASE [None]
  - DEPRESSION [None]
  - EMBOLISM [None]
  - EMPHYSEMA [None]
  - FATIGUE [None]
  - MYOCARDIAL INFARCTION [None]
  - PLEURAL INFECTION [None]
  - PNEUMONIA [None]
  - PULMONARY EMBOLISM [None]
